FAERS Safety Report 9386169 (Version 1)
Quarter: 2013Q3

REPORT INFORMATION
  Report Type: Spontaneous
  Country: US (occurrence: US)
  Receive Date: 20130707
  Receipt Date: 20130707
  Transmission Date: 20140515
  Serious: Yes (Other)
  Sender: FDA-Public Use
  Company Number: US-UCBSA-090709

PATIENT
  Sex: 0

DRUGS (3)
  1. VIMPAT [Suspect]
     Indication: COMPLEX PARTIAL SEIZURES
  2. KEPPRA [Suspect]
     Indication: CONVULSION
     Dosage: UNSPECIFIED DOSE
  3. ZONISAMIDE [Concomitant]
     Indication: COMPLEX PARTIAL SEIZURES

REACTIONS (2)
  - Convulsion [Recovering/Resolving]
  - Seizure cluster [Unknown]
